FAERS Safety Report 12262874 (Version 2)
Quarter: 2016Q2

REPORT INFORMATION
  Report Type: Spontaneous
  Country: IT (occurrence: IT)
  Receive Date: 20160413
  Receipt Date: 20160425
  Transmission Date: 20160815
  Serious: Yes (Other)
  Sender: FDA-Public Use
  Company Number: IT-PFIZER INC-2016198182

PATIENT
  Age: 67 Year
  Sex: Female

DRUGS (2)
  1. TORVAST [Suspect]
     Active Substance: ATORVASTATIN
     Indication: HYPERCHOLESTEROLAEMIA
     Dosage: UNK, DAILY
     Route: 048
     Dates: start: 20160218, end: 20160224
  2. TORVAST [Suspect]
     Active Substance: ATORVASTATIN
     Indication: PERIPHERAL VASCULAR DISORDER

REACTIONS (4)
  - Drop attacks [Recovered/Resolved]
  - Myalgia [Recovered/Resolved]
  - Exercise tolerance decreased [Recovered/Resolved]
  - Abdominal pain [Recovered/Resolved]

NARRATIVE: CASE EVENT DATE: 20160224
